FAERS Safety Report 13502960 (Version 2)
Quarter: 2017Q2

REPORT INFORMATION
  Report Type: Report from Study
  Country: US (occurrence: US)
  Receive Date: 20170502
  Receipt Date: 20170523
  Transmission Date: 20170830
  Serious: Yes (Death, Hospitalization)
  Sender: FDA-Public Use
  Company Number: US-US WORLDMEDS, LLC-USW201704-000551

PATIENT
  Age: 73 Year
  Sex: Female
  Weight: 99.79 kg

DRUGS (5)
  1. APOKYN [Suspect]
     Active Substance: APOMORPHINE HYDROCHLORIDE
     Indication: PARKINSON^S DISEASE
     Route: 058
     Dates: start: 20170315, end: 20170412
  2. SINEMET [Concomitant]
     Active Substance: CARBIDOPA\LEVODOPA
  3. COMTAN [Concomitant]
     Active Substance: ENTACAPONE
  4. PROVIGIL [Concomitant]
     Active Substance: MODAFINIL
  5. SINEMET [Concomitant]
     Active Substance: CARBIDOPA\LEVODOPA

REACTIONS (5)
  - Confusional state [Not Recovered/Not Resolved]
  - Death [Fatal]
  - Urinary tract infection [Recovering/Resolving]
  - Pain [Not Recovered/Not Resolved]
  - Cardiac failure congestive [Recovering/Resolving]

NARRATIVE: CASE EVENT DATE: 20170427
